FAERS Safety Report 10372652 (Version 2)
Quarter: 2014Q4

REPORT INFORMATION
  Report Type: Spontaneous
  Country: US (occurrence: US)
  Receive Date: 20140808
  Receipt Date: 20141205
  Transmission Date: 20150528
  Serious: No
  Sender: FDA-Public Use
  Company Number: US-BRISTOL-MYERS SQUIBB COMPANY-21135496

PATIENT
  Age: 63 Year
  Sex: Male

DRUGS (17)
  1. SPRYCEL [Suspect]
     Active Substance: DASATINIB
     Indication: ACUTE LYMPHOCYTIC LEUKAEMIA
     Route: 048
     Dates: start: 200611
  2. TURMERIC [Concomitant]
     Active Substance: TURMERIC
     Dosage: FORMULATION: CAPSULE
     Route: 048
  3. NASONEX [Concomitant]
     Active Substance: MOMETASONE FUROATE
     Dosage: FORMULATION: AEROSOL
     Route: 055
  4. NEUPOGEN [Concomitant]
     Active Substance: FILGRASTIM
     Route: 058
  5. POTASSIUM CHLORIDE. [Concomitant]
     Active Substance: POTASSIUM CHLORIDE
     Dosage: FORMULATION: CAPSULE
     Route: 048
  6. VITAMIN B COMPLEX [Concomitant]
     Active Substance: CYANOCOBALAMIN\DEXPANTHENOL\NIACINAMIDE\PYRIDOXINE HYDROCHLORIDE\RIBOFLAVIN 5^-PHOSPHATE SODIUM\THIAMINE HYDROCHLORIDE\VITAMIN B COMPLEX
     Dosage: FORMULATION: TABLET
     Route: 048
  7. ALLEGRA [Concomitant]
     Active Substance: FEXOFENADINE HYDROCHLORIDE
     Dosage: FORMULATION: TABLET, FREQUENCY: AS DIRECTED
     Route: 048
  8. VALTREX [Concomitant]
     Active Substance: VALACYCLOVIR HYDROCHLORIDE
     Dosage: FORMULATION: TABLET
     Route: 048
  9. VOLTAREN [Concomitant]
     Active Substance: DICLOFENAC SODIUM
     Dosage: STRENGTH: 1%
     Route: 061
  10. LASIX [Concomitant]
     Active Substance: FUROSEMIDE
     Dosage: FORMULATION: TABLET
  11. PRILOSEC [Concomitant]
     Active Substance: OMEPRAZOLE MAGNESIUM
     Dosage: FORMULATION: ENTERIC COATED TABLET
     Route: 048
  12. FISH OIL [Concomitant]
     Active Substance: FISH OIL
     Dosage: FORMULATION: CAPSULE
     Route: 048
  13. LACTOBACILLUS ACIDOPHILUS [Concomitant]
     Active Substance: LACTOBACILLUS ACIDOPHILUS
     Dosage: FORMULATION: CAPSULE, FREQUENCY: AS DIRECTED
  14. METANX [Concomitant]
     Active Substance: LEVOMEFOLATE CALCIUM\METHYLCOBALAMIN\PYRIDOXAL PHOSPHATE ANHYDROUS
     Dosage: DOSE: 3-35-2 MG  FORMULATION: TABLET
  15. MOBIC [Concomitant]
     Active Substance: MELOXICAM
     Dosage: FORMULATION: TABLET
     Route: 048
  16. SPRYCEL [Suspect]
     Active Substance: DASATINIB
     Indication: ACUTE LYMPHOCYTIC LEUKAEMIA
     Dosage: UNK-UNK:70MG
     Route: 048
     Dates: start: 200611
  17. PREDNISONE. [Concomitant]
     Active Substance: PREDNISONE
     Dosage: FORMULATION: TABLET, 1 DF: 20MG, INSTRUCTION: 4.5 TABS FOR 5 DAYS
     Route: 048

REACTIONS (3)
  - Swelling face [Recovering/Resolving]
  - Sneezing [Recovering/Resolving]
  - Peripheral swelling [Recovering/Resolving]
